FAERS Safety Report 20463099 (Version 1)
Quarter: 2022Q1

REPORT INFORMATION
  Report Type: Spontaneous
  Country: US (occurrence: US)
  Receive Date: 20220211
  Receipt Date: 20220211
  Transmission Date: 20220423
  Serious: No
  Sender: FDA-Public Use
  Company Number: US-PERRIGO-21US006453

PATIENT

DRUGS (1)
  1. NAPROXEN SODIUM [Suspect]
     Active Substance: NAPROXEN SODIUM
     Indication: Sciatica
     Dosage: 440 MG, BID
     Route: 048
     Dates: start: 2021, end: 2021

REACTIONS (3)
  - Drug ineffective for unapproved indication [Unknown]
  - Incorrect dose administered [Recovered/Resolved]
  - Incorrect product administration duration [Recovered/Resolved]

NARRATIVE: CASE EVENT DATE: 20210101
